FAERS Safety Report 6427981-9 (Version None)
Quarter: 2009Q4

REPORT INFORMATION
  Report Type: 
  Country: None (occurrence: None)
  Receive Date: 20091105
  Receipt Date: 20091102
  Transmission Date: 20100525
  Serious: Yes (Other)
  Sender: FDA-Public Use
  Company Number: PHEH2009US11364

PATIENT
  Sex: Female

DRUGS (1)
  1. RITALIN [Suspect]
     Dosage: 20 MG

REACTIONS (1)
  - OVERDOSE [None]
